FAERS Safety Report 4343461-9 (Version None)
Quarter: 2004Q2

REPORT INFORMATION
  Report Type: 
  Country: None (occurrence: None)
  Receive Date: 20040412
  Receipt Date: 20040405
  Transmission Date: 20050107
  Serious: Yes (Death)
  Sender: FDA-Public Use
  Company Number: JP-JNJFOC-20040305736

PATIENT
  Age: 78 Year
  Sex: Female

DRUGS (9)
  1. DURAGESIC [Suspect]
     Indication: CANCER PAIN
     Dosage: SEE IMAGE
     Route: 062
     Dates: start: 20030724, end: 20030726
  2. DURAGESIC [Suspect]
     Indication: CANCER PAIN
     Dosage: SEE IMAGE
     Route: 062
     Dates: start: 20030727, end: 20030730
  3. DURAGESIC [Suspect]
     Indication: CANCER PAIN
     Dosage: SEE IMAGE
     Route: 062
     Dates: start: 20030731, end: 20030802
  4. DURAGESIC [Suspect]
     Indication: CANCER PAIN
     Dosage: SEE IMAGE
     Route: 062
     Dates: start: 20030803, end: 20030812
  5. MAGNESIUM OXIDE (MAGNESIUM OXIDE) [Concomitant]
  6. METOCLOPRAMIDE [Concomitant]
  7. LORMETAZEPAM (LORMETAZEPAM) [Concomitant]
  8. MORPHINE [Concomitant]
  9. MORPHINE SULFATE [Concomitant]

REACTIONS (1)
  - DEATH [None]
